FAERS Safety Report 11544490 (Version 1)
Quarter: 2015Q3

REPORT INFORMATION
  Report Type: Spontaneous
  Country: US (occurrence: None)
  Receive Date: 20150923
  Receipt Date: 20150923
  Transmission Date: 20151125
  Serious: Yes (Other)
  Sender: FDA-Public Use
  Company Number: None

PATIENT
  Age: 47 Year
  Sex: Female
  Weight: 57.15 kg

DRUGS (7)
  1. LEVOTHYROXINE. [Concomitant]
     Active Substance: LEVOTHYROXINE
  2. IRON [Concomitant]
     Active Substance: IRON
  3. LEVOTHYROXINE 88MCG LEVOTYRO [Suspect]
     Active Substance: LEVOTHYROXINE
     Indication: HYPOTHYROIDISM
     Route: 048
     Dates: start: 20150819, end: 20150921
  4. TYLENOL [Concomitant]
     Active Substance: ACETAMINOPHEN
  5. MULTIVITAMIN [Concomitant]
     Active Substance: VITAMINS
  6. COCONUT OIL [Concomitant]
     Active Substance: COCONUT OIL
  7. IBUPROFEN. [Concomitant]
     Active Substance: IBUPROFEN

REACTIONS (3)
  - Heart rate irregular [None]
  - Product odour abnormal [None]
  - Cardiac disorder [None]

NARRATIVE: CASE EVENT DATE: 20150921
